FAERS Safety Report 8312299-X (Version None)
Quarter: 2012Q2

REPORT INFORMATION
  Report Type: 
  Country: None (occurrence: None)
  Receive Date: 20120425
  Receipt Date: 20120418
  Transmission Date: 20120825
  Serious: Yes (Death, Hospitalization, Other)
  Sender: FDA-Public Use
  Company Number: JP-ROCHE-1000053

PATIENT
  Sex: Male
  Weight: 60 kg

DRUGS (6)
  1. SELBEX [Concomitant]
     Indication: PROPHYLAXIS
     Route: 048
     Dates: start: 20110308
  2. PREDNISOLONE [Concomitant]
     Indication: RHEUMATOID ARTHRITIS
     Route: 048
     Dates: start: 20110308
  3. LOXOPROFEN SODIUM [Concomitant]
     Indication: RHEUMATOID ARTHRITIS
     Dosage: AROUND 5 MONTHS
     Route: 048
     Dates: start: 20110308
  4. ACTEMRA [Suspect]
     Indication: RHEUMATOID ARTHRITIS
     Route: 041
     Dates: start: 20110602, end: 20110728
  5. FAMOTIDINE [Concomitant]
     Indication: PROPHYLAXIS
     Route: 048
     Dates: start: 20110308
  6. AZULFIDINE [Concomitant]
     Indication: RHEUMATOID ARTHRITIS
     Dosage: FORM: ENT
     Route: 048
     Dates: start: 20110308

REACTIONS (5)
  - METASTATIC NEOPLASM [None]
  - DISSEMINATED INTRAVASCULAR COAGULATION [None]
  - PULMONARY HAEMORRHAGE [None]
  - PNEUMOTHORAX [None]
  - INFECTION [None]
